FAERS Safety Report 25189789 (Version 2)
Quarter: 2025Q3

REPORT INFORMATION
  Report Type: Spontaneous
  Country: EU (occurrence: EU)
  Receive Date: 20250411
  Receipt Date: 20250911
  Transmission Date: 20251021
  Serious: Yes (Hospitalization, Other)
  Sender: MSN LABORATORIES PRIVATE LIMITED
  Company Number: None

PATIENT

DRUGS (30)
  1. PREGABALIN [Suspect]
     Active Substance: PREGABALIN
     Indication: Product used for unknown indication
     Route: 065
  2. AMOXICILLIN [Suspect]
     Active Substance: AMOXICILLIN
     Indication: Toothache
     Route: 065
  3. BENZYDAMINE [Suspect]
     Active Substance: BENZYDAMINE
     Indication: Toothache
     Route: 061
  4. BUPRENORPHINE [Suspect]
     Active Substance: BUPRENORPHINE
     Indication: Toothache
     Route: 062
  5. BUPRENORPHINE [Suspect]
     Active Substance: BUPRENORPHINE
     Route: 065
  6. CHLORHEXIDINE [Suspect]
     Active Substance: CHLORHEXIDINE
     Indication: Toothache
     Route: 061
  7. CLINDAMYCIN [Suspect]
     Active Substance: CLINDAMYCIN
     Indication: Toothache
     Route: 065
  8. ACETAMINOPHEN\CODEINE PHOSPHATE [Suspect]
     Active Substance: ACETAMINOPHEN\CODEINE PHOSPHATE
     Indication: Toothache
     Route: 065
  9. DIAZEPAM [Suspect]
     Active Substance: DIAZEPAM
     Indication: Toothache
     Route: 065
  10. DICLOFENAC [Suspect]
     Active Substance: DICLOFENAC
     Indication: Toothache
     Route: 048
  11. DICLOFENAC [Suspect]
     Active Substance: DICLOFENAC
     Route: 061
  12. DOXYLAMINE [Suspect]
     Active Substance: DOXYLAMINE
     Indication: Depression
     Dosage: 25 MG , DAILY, AT NIGHT
     Route: 065
  13. DOXYLAMINE [Suspect]
     Active Substance: DOXYLAMINE
     Indication: Sleep disorder
  14. DOXYLAMINE [Suspect]
     Active Substance: DOXYLAMINE
     Indication: Depression
  15. DULOXETINE [Suspect]
     Active Substance: DULOXETINE
     Indication: Pain
     Route: 065
  16. ESCITALOPRAM [Suspect]
     Active Substance: ESCITALOPRAM OXALATE
     Indication: Insomnia
     Dosage: 10 MG AT NIGHT
     Route: 065
  17. ESCITALOPRAM [Suspect]
     Active Substance: ESCITALOPRAM OXALATE
     Indication: Depression
  18. ETORICOXIB [Suspect]
     Active Substance: ETORICOXIB
     Indication: Pain
     Route: 065
  19. FLURBIPROFEN [Suspect]
     Active Substance: FLURBIPROFEN
     Indication: Toothache
     Route: 061
  20. IBUPROFEN [Suspect]
     Active Substance: IBUPROFEN
     Indication: Toothache
     Route: 048
  21. KETOPROFEN [Suspect]
     Active Substance: KETOPROFEN
     Indication: Toothache
     Route: 065
  22. LIDOCAINE [Suspect]
     Active Substance: LIDOCAINE
     Indication: Toothache
     Route: 061
  23. METAMIZOLE [Suspect]
     Active Substance: METAMIZOLE
     Indication: Gingival pain
     Route: 065
  24. MORPHINE [Suspect]
     Active Substance: MORPHINE
     Indication: Toothache
     Route: 061
  25. OXYCODONE [Suspect]
     Active Substance: OXYCODONE
     Indication: Toothache
     Route: 065
  26. OXYCODONE [Suspect]
     Active Substance: OXYCODONE
     Indication: Analgesic therapy
  27. ACETAMINOPHEN [Suspect]
     Active Substance: ACETAMINOPHEN
     Indication: Toothache
     Route: 065
  28. ACETAMINOPHEN [Suspect]
     Active Substance: ACETAMINOPHEN
     Indication: Gingival pain
  29. TRAZODONE [Suspect]
     Active Substance: TRAZODONE HYDROCHLORIDE
     Indication: Pain
     Route: 065
  30. IPIDACRINE [Concomitant]
     Active Substance: IPIDACRINE
     Indication: Product used for unknown indication
     Route: 065

REACTIONS (8)
  - Drug interaction [Unknown]
  - Drug ineffective [Unknown]
  - Toothache [Recovering/Resolving]
  - Central pain syndrome [Recovered/Resolved]
  - Dry mouth [Unknown]
  - Hyperaesthesia [Recovered/Resolved]
  - Somnolence [Unknown]
  - Gingival pain [Recovering/Resolving]
